FAERS Safety Report 15848308 (Version 1)
Quarter: 2019Q1

REPORT INFORMATION
  Report Type: Spontaneous
  Country: US (occurrence: US)
  Receive Date: 20190121
  Receipt Date: 20190121
  Transmission Date: 20190417
  Serious: No
  Sender: FDA-Public Use
  Company Number: US-PFIZER INC-2019025248

PATIENT
  Age: 65 Year
  Sex: Male

DRUGS (2)
  1. SOMAVERT [Suspect]
     Active Substance: PEGVISOMANT
     Dosage: 45 MG, WEEKLY (3 15MG INJECTIONS PER WEEK )
  2. SOMAVERT [Suspect]
     Active Substance: PEGVISOMANT
     Dosage: 15 MG, DAILY

REACTIONS (5)
  - Alanine aminotransferase increased [Unknown]
  - Blood testosterone free decreased [Unknown]
  - Blood urea nitrogen/creatinine ratio increased [Unknown]
  - Blood testosterone decreased [Unknown]
  - Aspartate aminotransferase increased [Unknown]

NARRATIVE: CASE EVENT DATE: 20180621
